FAERS Safety Report 4810560-4 (Version None)
Quarter: 2005Q4

REPORT INFORMATION
  Report Type: 
  Country: None (occurrence: None)
  Receive Date: 20051021
  Receipt Date: 20051021
  Transmission Date: 20060501
  Serious: Yes (Life-Threatening)
  Sender: FDA-Public Use
  Company Number: None

PATIENT
  Age: 77 Year
  Sex: Male
  Weight: 88.4514 kg

DRUGS (4)
  1. CALAN [Suspect]
     Dosage: 2 TIMES DAILY, 250 MGS
  2. EX-LAX [Concomitant]
  3. SENNOSIDES [Concomitant]
  4. DUCOLUX [Concomitant]

REACTIONS (10)
  - ABNORMAL FAECES [None]
  - ACTIVITIES OF DAILY LIVING IMPAIRED [None]
  - ANHEDONIA [None]
  - CONSTIPATION [None]
  - DEPRESSED LEVEL OF CONSCIOUSNESS [None]
  - DYSPEPSIA [None]
  - GASTROINTESTINAL DISORDER [None]
  - INJURY [None]
  - RECTAL HAEMORRHAGE [None]
  - SOMNOLENCE [None]
